FAERS Safety Report 8269429-8 (Version None)
Quarter: 2012Q2

REPORT INFORMATION
  Report Type: 
  Country: None (occurrence: None)
  Receive Date: 20120409
  Receipt Date: 20120302
  Transmission Date: 20120825
  Serious: Yes (Hospitalization)
  Sender: FDA-Public Use
  Company Number: US-ASTRAZENECA-2012SE14793

PATIENT
  Sex: Female

DRUGS (2)
  1. BRILINTA [Suspect]
     Route: 048
     Dates: start: 20120206
  2. BRILINTA [Suspect]
     Route: 048
     Dates: start: 20120204, end: 20120205

REACTIONS (3)
  - NAUSEA [None]
  - EPISTAXIS [None]
  - HEADACHE [None]
